FAERS Safety Report 17176289 (Version 1)
Quarter: 2019Q4

REPORT INFORMATION
  Report Type: Spontaneous
  Country: CN (occurrence: CN)
  Receive Date: 20191219
  Receipt Date: 20191219
  Transmission Date: 20200122
  Serious: Yes (Other)
  Sender: FDA-Public Use
  Company Number: CN-ELI_LILLY_AND_COMPANY-CN201912005216

PATIENT
  Age: 72 Year
  Sex: Female
  Weight: 55 kg

DRUGS (2)
  1. METFORMIN [Concomitant]
     Active Substance: METFORMIN HYDROCHLORIDE
     Indication: PRODUCT USED FOR UNKNOWN INDICATION
  2. HUMALOG MIX75/25 [Suspect]
     Active Substance: INSULIN LISPRO
     Indication: DIABETES MELLITUS
     Dosage: UNK, UNKNOWN
     Route: 065
     Dates: start: 2016, end: 20191205

REACTIONS (2)
  - Product dose omission [Unknown]
  - Breast cancer [Unknown]

NARRATIVE: CASE EVENT DATE: 20191205
